FAERS Safety Report 25240760 (Version 3)
Quarter: 2025Q2

REPORT INFORMATION
  Report Type: Spontaneous
  Country: FR (occurrence: FR)
  Receive Date: 20250425
  Receipt Date: 20250520
  Transmission Date: 20250717
  Serious: Yes (Life-Threatening, Other)
  Sender: MYLAN
  Company Number: None

PATIENT
  Age: 44 Year
  Sex: Female

DRUGS (44)
  1. TRAMADOL [Suspect]
     Active Substance: TRAMADOL
     Indication: Product used for unknown indication
  2. TRAMADOL [Suspect]
     Active Substance: TRAMADOL
     Route: 065
  3. TRAMADOL [Suspect]
     Active Substance: TRAMADOL
     Route: 065
  4. TRAMADOL [Suspect]
     Active Substance: TRAMADOL
  5. FENTANYL [Suspect]
     Active Substance: FENTANYL
     Indication: Product used for unknown indication
  6. FENTANYL [Suspect]
     Active Substance: FENTANYL
     Route: 065
  7. FENTANYL [Suspect]
     Active Substance: FENTANYL
     Route: 065
  8. FENTANYL [Suspect]
     Active Substance: FENTANYL
  9. FENTANYL [Suspect]
     Active Substance: FENTANYL
     Indication: Product used for unknown indication
  10. FENTANYL [Suspect]
     Active Substance: FENTANYL
     Route: 062
  11. FENTANYL [Suspect]
     Active Substance: FENTANYL
     Route: 062
  12. FENTANYL [Suspect]
     Active Substance: FENTANYL
  13. OXAZEPAM [Suspect]
     Active Substance: OXAZEPAM
     Indication: Product used for unknown indication
  14. OXAZEPAM [Suspect]
     Active Substance: OXAZEPAM
     Route: 065
  15. OXAZEPAM [Suspect]
     Active Substance: OXAZEPAM
     Route: 065
  16. OXAZEPAM [Suspect]
     Active Substance: OXAZEPAM
  17. Doxylamini hydrogenosuccinas [Concomitant]
     Indication: Product used for unknown indication
  18. Doxylamini hydrogenosuccinas [Concomitant]
     Route: 065
  19. Doxylamini hydrogenosuccinas [Concomitant]
     Route: 065
  20. Doxylamini hydrogenosuccinas [Concomitant]
  21. LORMETAZEPAM [Concomitant]
     Active Substance: LORMETAZEPAM
     Indication: Product used for unknown indication
  22. LORMETAZEPAM [Concomitant]
     Active Substance: LORMETAZEPAM
     Route: 065
  23. LORMETAZEPAM [Concomitant]
     Active Substance: LORMETAZEPAM
     Route: 065
  24. LORMETAZEPAM [Concomitant]
     Active Substance: LORMETAZEPAM
  25. AMITRIPTYLINE [Concomitant]
     Active Substance: AMITRIPTYLINE
     Indication: Product used for unknown indication
  26. AMITRIPTYLINE [Concomitant]
     Active Substance: AMITRIPTYLINE
     Route: 065
  27. AMITRIPTYLINE [Concomitant]
     Active Substance: AMITRIPTYLINE
     Route: 065
  28. AMITRIPTYLINE [Concomitant]
     Active Substance: AMITRIPTYLINE
  29. LOXAPINE [Concomitant]
     Active Substance: LOXAPINE
     Indication: Product used for unknown indication
  30. LOXAPINE [Concomitant]
     Active Substance: LOXAPINE
     Route: 065
  31. LOXAPINE [Concomitant]
     Active Substance: LOXAPINE
     Route: 065
  32. LOXAPINE [Concomitant]
     Active Substance: LOXAPINE
  33. PAROXETINE HYDROCHLORIDE [Concomitant]
     Active Substance: PAROXETINE HYDROCHLORIDE
     Indication: Product used for unknown indication
  34. PAROXETINE HYDROCHLORIDE [Concomitant]
     Active Substance: PAROXETINE HYDROCHLORIDE
     Route: 065
  35. PAROXETINE HYDROCHLORIDE [Concomitant]
     Active Substance: PAROXETINE HYDROCHLORIDE
     Route: 065
  36. PAROXETINE HYDROCHLORIDE [Concomitant]
     Active Substance: PAROXETINE HYDROCHLORIDE
  37. DOXEPIN [Concomitant]
     Active Substance: DOXEPIN
     Indication: Product used for unknown indication
  38. DOXEPIN [Concomitant]
     Active Substance: DOXEPIN
     Route: 065
  39. DOXEPIN [Concomitant]
     Active Substance: DOXEPIN
     Route: 065
  40. DOXEPIN [Concomitant]
     Active Substance: DOXEPIN
  41. LEVETIRACETAM [Concomitant]
     Active Substance: LEVETIRACETAM
     Indication: Product used for unknown indication
  42. LEVETIRACETAM [Concomitant]
     Active Substance: LEVETIRACETAM
     Route: 065
  43. LEVETIRACETAM [Concomitant]
     Active Substance: LEVETIRACETAM
     Route: 065
  44. LEVETIRACETAM [Concomitant]
     Active Substance: LEVETIRACETAM

REACTIONS (7)
  - Altered state of consciousness [Recovered/Resolved]
  - Bradypnoea [Recovered/Resolved]
  - Oxygen saturation decreased [Recovered/Resolved]
  - Hypothermia [Recovered/Resolved]
  - Miosis [Recovered/Resolved]
  - Drug use disorder [Unknown]
  - Drug abuse [Unknown]

NARRATIVE: CASE EVENT DATE: 20250127
